FAERS Safety Report 11658036 (Version 2)
Quarter: 2015Q4

REPORT INFORMATION
  Report Type: Report from Study
  Country: US (occurrence: US)
  Receive Date: 20151023
  Receipt Date: 20151113
  Transmission Date: 20160304
  Serious: Yes (Death)
  Sender: FDA-Public Use
  Company Number: US-009507513-1510USA010817

PATIENT

DRUGS (3)
  1. TEMODAR [Suspect]
     Active Substance: TEMOZOLOMIDE
     Dosage: FOR MAINTEINANCE, 12 CYCLES OF 150 MG/M2/DAY ON DAYS 1 TO 5 OF THE FIRST 28 DAY CYCLE
     Route: 048
  2. TEMODAR [Suspect]
     Active Substance: TEMOZOLOMIDE
     Dosage: 75 MG/M2, QD, , FOR 6 WEEKS
     Route: 048
  3. VANDETANIB. [Suspect]
     Active Substance: VANDETANIB
     Indication: GLIOBLASTOMA
     Dosage: 100 MG, DAILY , BEGINING 5 TO 7 DAYS, BEFORE INITIATING RADIATION

REACTIONS (1)
  - Pneumonia [Fatal]
